FAERS Safety Report 21064629 (Version 1)
Quarter: 2022Q3

REPORT INFORMATION
  Report Type: Report from Study
  Country: PL (occurrence: PL)
  Receive Date: 20220711
  Receipt Date: 20220711
  Transmission Date: 20221027
  Serious: Yes (Hospitalization)
  Sender: FDA-Public Use
  Company Number: PL-PFIZER INC-2020292684

PATIENT
  Age: 19 Year
  Sex: Female
  Weight: 64 kg

DRUGS (7)
  1. ABROCITINIB [Suspect]
     Active Substance: ABROCITINIB
     Indication: Dermatitis atopic
     Dosage: 200 MG, 1X/DAY
     Route: 048
  2. OLIVE TREE [Concomitant]
     Indication: Supplementation therapy
     Dosage: UNK
     Dates: start: 201903
  3. LIV 52 [ACHILLEA MILLEFOLIUM;AYURVEDIC PREPARATION NOS;CAPPARIS SPINOS [Concomitant]
     Indication: Supplementation therapy
     Dosage: UNK
     Dates: start: 201903
  4. COD LIVER OIL [Concomitant]
     Active Substance: COD LIVER OIL
     Indication: Supplementation therapy
     Dosage: UNK
     Dates: start: 201903
  5. ANGELICA SINENSIS ROOT [Concomitant]
     Active Substance: ANGELICA SINENSIS ROOT
     Indication: Supplementation therapy
     Dosage: UNK
     Dates: start: 201903
  6. VITAMIN B [Concomitant]
     Active Substance: VITAMIN B
     Indication: Supplementation therapy
     Dosage: UNK
     Dates: start: 201903
  7. DIANE (CYPROTERONE ACETATE\ETHINYL ESTRADIOL) [Concomitant]
     Active Substance: CYPROTERONE ACETATE\ETHINYL ESTRADIOL
     Indication: Contraception
     Dosage: UNK
     Dates: start: 20190905

REACTIONS (1)
  - Fibroadenoma of breast [Recovered/Resolved]

NARRATIVE: CASE EVENT DATE: 20200521
